FAERS Safety Report 9125895 (Version 1)
Quarter: 2013Q1

REPORT INFORMATION
  Report Type: Spontaneous
  Country: FR (occurrence: FR)
  Receive Date: 20130117
  Receipt Date: 20130117
  Transmission Date: 20140127
  Serious: Yes (Hospitalization)
  Sender: FDA-Public Use
  Company Number: FR-PFIZER INC-2013018317

PATIENT
  Age: 75 Year
  Sex: Female

DRUGS (5)
  1. EUPANTOL [Suspect]
     Dosage: 20 MG, 1X/DAY
     Route: 048
     Dates: start: 20121022, end: 20121023
  2. ZOPHREN [Suspect]
     Dosage: UNK
     Route: 048
     Dates: start: 20121023
  3. PRIMPERAN [Suspect]
     Dosage: UNK
     Route: 048
     Dates: start: 20121023
  4. XARELTO [Concomitant]
     Dosage: UNK
     Route: 048
     Dates: start: 20121022
  5. LEVOTHYROXINE [Concomitant]
     Dosage: UNK

REACTIONS (3)
  - Coma [Recovered/Resolved]
  - Hyponatraemia [Recovered/Resolved]
  - Vomiting [Unknown]
